FAERS Safety Report 7632768-5 (Version None)
Quarter: 2011Q3

REPORT INFORMATION
  Report Type: 
  Country: None (occurrence: None)
  Receive Date: 20110725
  Receipt Date: 20110111
  Transmission Date: 20111222
  Serious: No
  Sender: FDA-Public Use
  Company Number: US-BRISTOL-MYERS SQUIBB COMPANY-15474984

PATIENT
  Age: 63 Year
  Sex: Male

DRUGS (8)
  1. RAMIPRIL [Concomitant]
  2. SIMVASTATIN [Concomitant]
  3. WARFARIN SODIUM [Suspect]
     Indication: DEEP VEIN THROMBOSIS
  4. CELEBREX [Suspect]
  5. NEXIUM [Concomitant]
  6. METFORMIN HCL [Concomitant]
  7. METOPROLOL TARTRATE [Concomitant]
  8. NIACIN [Concomitant]

REACTIONS (4)
  - PERIORBITAL HAEMATOMA [None]
  - CONTUSION [None]
  - ARTHRALGIA [None]
  - RECTAL HAEMORRHAGE [None]
